FAERS Safety Report 4288523-X (Version None)
Quarter: 2004Q1

REPORT INFORMATION
  Report Type: 
  Country: None (occurrence: None)
  Receive Date: 20040205
  Receipt Date: 20040120
  Transmission Date: 20041129
  Serious: Yes (Hospitalization)
  Sender: FDA-Public Use
  Company Number: EWC040137710

PATIENT
  Age: 70 Year
  Sex: Female

DRUGS (8)
  1. EVISTA [Suspect]
     Indication: OSTEOPOROSIS
     Dosage: 60 MG/DAY
  2. FUROSEMIDE [Concomitant]
  3. VIOXX [Concomitant]
  4. ALLOPURINOL [Concomitant]
  5. NEBIVOLOL [Concomitant]
  6. CIPRAMIL (CITALOPRAM HYDROBROMIDE) [Concomitant]
  7. CANRENOL (POTASSIUM CANRENOATE) [Concomitant]
  8. LORAMET (LORMETAZEPAM) [Concomitant]

REACTIONS (1)
  - NO ADVERSE DRUG EFFECT [None]
